FAERS Safety Report 7120058-9 (Version None)
Quarter: 2010Q4

REPORT INFORMATION
  Report Type: 
  Country: None (occurrence: None)
  Receive Date: 20101123
  Receipt Date: 20101119
  Transmission Date: 20110411
  Serious: Yes (Hospitalization, Other)
  Sender: FDA-Public Use
  Company Number: US-ALLERGAN-1014040US

PATIENT
  Age: 67 Year
  Sex: Male
  Weight: 120.9 kg

DRUGS (5)
  1. BOTULINUM TOXIN TYPE A [Suspect]
     Indication: TORTICOLLIS
     Dosage: 200 UNITS, SINGLE
     Route: 030
  2. DIAZEPAM [Concomitant]
     Indication: ANXIETY
     Dosage: 5 MG, QD
     Route: 048
     Dates: start: 20050101
  3. LIPITOR [Concomitant]
     Indication: HYPERLIPIDAEMIA
     Dosage: 20 MG, QPM
     Route: 048
     Dates: start: 20060101
  4. PERCOCET [Concomitant]
     Indication: NEUROPATHY PERIPHERAL
     Dosage: 10 MG, BID
     Route: 048
     Dates: start: 20080101
  5. HUMULIN R [Concomitant]
     Indication: DIABETES MELLITUS
     Dosage: 0.3 ML, QAM
     Route: 058
     Dates: start: 20090101

REACTIONS (1)
  - SYNOVIAL CYST [None]
